FAERS Safety Report 5499024-5 (Version None)
Quarter: 2007Q4

REPORT INFORMATION
  Report Type: 
  Country: None (occurrence: None)
  Receive Date: 20071026
  Receipt Date: 20071022
  Transmission Date: 20080405
  Serious: No
  Sender: FDA-Public Use
  Company Number: A0651958A

PATIENT
  Age: 77 Year
  Sex: Female

DRUGS (3)
  1. ADVAIR DISKUS 100/50 [Suspect]
     Indication: CHRONIC OBSTRUCTIVE PULMONARY DISEASE
     Dosage: 1PUFF TWICE PER DAY
     Route: 055
  2. VITAMINS [Concomitant]
  3. MINERAL TAB [Concomitant]

REACTIONS (5)
  - EXCESSIVE EYE BLINKING [None]
  - MOUTH ULCERATION [None]
  - PALPITATIONS [None]
  - PARAESTHESIA [None]
  - SCIATICA [None]
